FAERS Safety Report 4877324-7 (Version None)
Quarter: 2006Q1

REPORT INFORMATION
  Report Type: 
  Country: None (occurrence: None)
  Receive Date: 20060106
  Receipt Date: 20051221
  Transmission Date: 20060701
  Serious: Yes (Other)
  Sender: FDA-Public Use
  Company Number: FR-2005-023721

PATIENT
  Age: 50 Year
  Sex: Female
  Weight: 68 kg

DRUGS (2)
  1. BETASERON [Suspect]
     Indication: RELAPSING-REMITTING MULTIPLE SCLEROSIS
     Dosage: 8 MIU, 3X/WEEK, SUBCUTANEOUS
     Route: 058
     Dates: start: 20020829, end: 20051001
  2. TRIATEC COMP (RAMIPRIL) [Concomitant]

REACTIONS (3)
  - ANXIETY [None]
  - HYPERTHYROIDISM [None]
  - INSOMNIA [None]
